FAERS Safety Report 13063042 (Version 1)
Quarter: 2016Q4

REPORT INFORMATION
  Report Type: Spontaneous
  Country: IT (occurrence: IT)
  Receive Date: 20161227
  Receipt Date: 20161227
  Transmission Date: 20170207
  Serious: Yes (Other)
  Sender: FDA-Public Use
  Company Number: IT-ROCHE-1871356

PATIENT
  Age: 46 Year
  Sex: Male

DRUGS (3)
  1. CIPRALEX [Suspect]
     Active Substance: ESCITALOPRAM OXALATE
     Indication: DEPRESSION
     Dosage: 14 X 5 MG FILM-COATED TABLETS
     Route: 048
     Dates: start: 20150728, end: 20150728
  2. TAVOR (LORAZEPAM) [Suspect]
     Active Substance: LORAZEPAM
     Indication: DEPRESSION
     Dosage: 2.5 MG TABLETS^ 20 TABLETS
     Route: 048
     Dates: start: 20150728, end: 20150728
  3. VALIUM [Suspect]
     Active Substance: DIAZEPAM
     Indication: DEPRESSION
     Dosage: 5 MG/ML ORAL DROPS, SOLUTION^ BOTTLE CONTAINING 20?ORAL DROPS, SOLUTION
     Route: 048
     Dates: start: 20150728, end: 20150728

REACTIONS (3)
  - Depressed mood [Recovering/Resolving]
  - Psychomotor retardation [Recovering/Resolving]
  - Drug abuse [Unknown]

NARRATIVE: CASE EVENT DATE: 20150728
